FAERS Safety Report 11771958 (Version 2)
Quarter: 2016Q1

REPORT INFORMATION
  Report Type: Spontaneous
  Country: BR (occurrence: BR)
  Receive Date: 20151124
  Receipt Date: 20160210
  Transmission Date: 20160525
  Serious: Yes (Other)
  Sender: FDA-Public Use
  Company Number: PHHY2015BR142744

PATIENT
  Sex: Female
  Weight: 67 kg

DRUGS (1)
  1. FORASEQ [Suspect]
     Active Substance: BUDESONIDE\FORMOTEROL FUMARATE
     Indication: BRONCHITIS
     Dosage: UNK UNK, BID
     Route: 055

REACTIONS (4)
  - Device malfunction [Unknown]
  - Product use issue [Unknown]
  - Bronchitis [Not Recovered/Not Resolved]
  - Incorrect dose administered by device [Unknown]
